FAERS Safety Report 5911078-8 (Version None)
Quarter: 2008Q4

REPORT INFORMATION
  Report Type: 
  Country: None (occurrence: None)
  Receive Date: 20081007
  Receipt Date: 20071005
  Transmission Date: 20090506
  Serious: No
  Sender: FDA-Public Use
  Company Number: US-BRISTOL-MYERS SQUIBB COMPANY-13931811

PATIENT
  Age: 65 Year
  Sex: Female

DRUGS (1)
  1. AVAPRO [Suspect]

REACTIONS (6)
  - HEADACHE [None]
  - HYPERHIDROSIS [None]
  - INFLUENZA LIKE ILLNESS [None]
  - MALAISE [None]
  - SYNCOPE [None]
  - TREMOR [None]
